FAERS Safety Report 10255160 (Version 1)
Quarter: 2014Q2

REPORT INFORMATION
  Report Type: Spontaneous
  Country: TR (occurrence: TR)
  Receive Date: 20140624
  Receipt Date: 20140624
  Transmission Date: 20141212
  Serious: Yes (Other)
  Sender: FDA-Public Use
  Company Number: TR-SA-2014SA078821

PATIENT
  Age: 48 Year
  Sex: Female

DRUGS (3)
  1. RIFAMPICIN [Suspect]
     Indication: TUBERCULOSIS
     Route: 065
  2. ISONIAZID [Concomitant]
     Indication: TUBERCULOSIS
  3. ISONIAZID [Concomitant]
     Indication: TUBERCULOSIS

REACTIONS (9)
  - Addison^s disease [Recovering/Resolving]
  - Asthenia [Recovering/Resolving]
  - Weight decreased [Recovering/Resolving]
  - Decreased appetite [Recovered/Resolved]
  - Nausea [Recovering/Resolving]
  - Vomiting [Recovering/Resolving]
  - Skin hyperpigmentation [Recovering/Resolving]
  - Blood corticotrophin increased [Recovering/Resolving]
  - Blood cortisol decreased [Recovering/Resolving]
